FAERS Safety Report 7676512-4 (Version None)
Quarter: 2011Q3

REPORT INFORMATION
  Report Type: 
  Country: None (occurrence: None)
  Receive Date: 20110811
  Receipt Date: 20110805
  Transmission Date: 20111222
  Serious: Yes (Other)
  Sender: FDA-Public Use
  Company Number: JP-B.I. PHARMACEUTICALS,INC./RIDGEFIELD-2011-BP-13510NB

PATIENT
  Age: 86 Year
  Sex: Female

DRUGS (12)
  1. CONIEL [Concomitant]
     Indication: HYPERTENSION
     Route: 048
  2. METHYCOBAL [Concomitant]
     Route: 065
  3. CODEINE PHOSPHATE HYDRATE [Suspect]
     Dosage: 20 MG
     Route: 048
  4. LEVOFLOXACIN [Concomitant]
     Route: 031
  5. HYALEIN [Concomitant]
     Route: 065
  6. PURSENNID [Concomitant]
     Route: 065
  7. MUCOSTA [Concomitant]
     Route: 048
  8. LYRICA [Suspect]
     Route: 048
  9. MOBIC [Suspect]
     Indication: HERNIA
     Dosage: 10 MG
     Route: 048
     Dates: start: 20101215
  10. AM [Concomitant]
     Route: 065
  11. KETOPROFEN [Concomitant]
     Route: 062
  12. LOXONIN [Concomitant]
     Route: 065

REACTIONS (1)
  - ULCERATIVE KERATITIS [None]
